FAERS Safety Report 4433136-X (Version None)
Quarter: 2004Q3

REPORT INFORMATION
  Report Type: 
  Country: None (occurrence: None)
  Receive Date: 20040823
  Receipt Date: 20040813
  Transmission Date: 20050211
  Serious: Yes (Hospitalization, Other)
  Sender: FDA-Public Use
  Company Number: KII-2004-0013008

PATIENT
  Age: 65 Year
  Sex: Female

DRUGS (2)
  1. MORPHINE SULFATE [Suspect]
     Indication: PAIN
     Dosage: ORAL
     Route: 048
  2. ACETAMINOPHEN AND HYDROCODONE BITARTRATE [Suspect]
     Indication: BACK PAIN
     Dosage: ORAL
     Route: 048

REACTIONS (12)
  - ACCIDENTAL OVERDOSE [None]
  - ANALGESIC DRUG LEVEL INCREASED [None]
  - APNOEA [None]
  - ASTHENIA [None]
  - BLOOD PRESSURE DIASTOLIC DECREASED [None]
  - DEPRESSED LEVEL OF CONSCIOUSNESS [None]
  - MENTAL STATUS CHANGES [None]
  - MIOSIS [None]
  - OXYGEN SATURATION DECREASED [None]
  - RESPIRATORY DEPRESSION [None]
  - RESPIRATORY RATE INCREASED [None]
  - SPEECH DISORDER [None]
